FAERS Safety Report 8059640-3 (Version None)
Quarter: 2012Q1

REPORT INFORMATION
  Report Type: 
  Country: None (occurrence: None)
  Receive Date: 20120119
  Receipt Date: 20120119
  Transmission Date: 20120608
  Serious: Yes (Hospitalization)
  Sender: FDA-Public Use
  Company Number: None

PATIENT
  Age: 32 Year
  Sex: Male
  Weight: 83.3 kg

DRUGS (2)
  1. KEFLEX [Suspect]
     Indication: CELLULITIS
     Dosage: 1000 MG BID PO RECENT
     Route: 048
  2. DOXYCYLCINE [Suspect]
     Indication: CELLULITIS
     Dosage: 100 MG BID PO RECENT
     Route: 048

REACTIONS (1)
  - ANAPHYLACTIC REACTION [None]
